FAERS Safety Report 20773838 (Version 1)
Quarter: 2022Q2

REPORT INFORMATION
  Report Type: Spontaneous
  Country: NL (occurrence: NL)
  Receive Date: 20220502
  Receipt Date: 20220502
  Transmission Date: 20220721
  Serious: Yes (Hospitalization)
  Sender: FDA-Public Use
  Company Number: NL-RISINGPHARMA-NL-2022RISLIT00426

PATIENT
  Age: 5 Year
  Sex: Female

DRUGS (9)
  1. CLOPIDOGREL BISULFATE [Suspect]
     Active Substance: CLOPIDOGREL BISULFATE
     Indication: Antiplatelet therapy
     Route: 065
  2. ASPIRIN [Concomitant]
     Active Substance: ASPIRIN
     Indication: Anticoagulant therapy
     Route: 065
  3. PRIVIGEN [Concomitant]
     Active Substance: HUMAN IMMUNOGLOBULIN G
     Indication: Kawasaki^s disease
     Route: 042
  4. ASPIRIN [Concomitant]
     Active Substance: ASPIRIN
     Indication: Kawasaki^s disease
     Route: 065
  5. PLASMINOGEN [Concomitant]
     Active Substance: PLASMINOGEN
     Indication: Myocardial ischaemia
     Route: 065
  6. PLASMINOGEN [Concomitant]
     Active Substance: PLASMINOGEN
     Route: 065
  7. ALTEPLASE [Concomitant]
     Active Substance: ALTEPLASE
     Route: 065
  8. NITROGLYCERIN [Concomitant]
     Active Substance: NITROGLYCERIN
     Indication: Myocardial ischaemia
     Route: 065
  9. HEPARIN [Concomitant]
     Active Substance: HEPARIN SODIUM
     Route: 065

REACTIONS (1)
  - Treatment failure [Unknown]
